FAERS Safety Report 9890513 (Version 2)
Quarter: 2015Q1

REPORT INFORMATION
  Report Type: Spontaneous
  Country: GB (occurrence: GB)
  Receive Date: 20140212
  Receipt Date: 20150210
  Transmission Date: 20150721
  Serious: Yes (Other)
  Sender: FDA-Public Use
  Company Number: GB-ACCORD-021784

PATIENT
  Sex: Female

DRUGS (4)
  1. LIVIAL [Suspect]
     Active Substance: TIBOLONE
     Indication: VULVOVAGINAL DRYNESS
     Dosage: GRADUALLY COME OFF LIVIAL.
     Route: 048
  2. VAGIFEM [Concomitant]
     Active Substance: ESTRADIOL
  3. METHOTREXATE [Suspect]
     Active Substance: METHOTREXATE
     Indication: PRODUCT USED FOR UNKNOWN INDICATION
     Route: 048
  4. PREDNISOLONE. [Concomitant]
     Active Substance: PREDNISOLONE
     Dosage: EVENTUALLY OVER 3-4 YEARS IT GOT DOWN TO 5 MG

REACTIONS (25)
  - General physical health deterioration [Not Recovered/Not Resolved]
  - Feeling abnormal [Unknown]
  - Pain in extremity [Unknown]
  - Body height decreased [Unknown]
  - Malaise [Unknown]
  - Umbilical hernia [Unknown]
  - Rheumatoid arthritis [Not Recovered/Not Resolved]
  - Temporal arteritis [Unknown]
  - Gait disturbance [Not Recovered/Not Resolved]
  - Resorption bone increased [Not Recovered/Not Resolved]
  - Incorrect dose administered [Unknown]
  - Osteoarthritis [Not Recovered/Not Resolved]
  - Limb discomfort [Unknown]
  - Adverse drug reaction [Unknown]
  - Spinal deformity [Unknown]
  - Myalgia [Not Recovered/Not Resolved]
  - Hip arthroplasty [Unknown]
  - Tooth loss [Not Recovered/Not Resolved]
  - Knee arthroplasty [Unknown]
  - Hyperkeratosis [Unknown]
  - Gingival recession [Not Recovered/Not Resolved]
  - Eating disorder [Unknown]
  - Headache [Unknown]
  - Gingival disorder [Unknown]
  - Bone disorder [Unknown]

NARRATIVE: CASE EVENT DATE: 2000
